FAERS Safety Report 5045753-7 (Version None)
Quarter: 2006Q2

REPORT INFORMATION
  Report Type: 
  Country: None (occurrence: None)
  Receive Date: 20060601
  Receipt Date: 20060207
  Transmission Date: 20061013
  Serious: No
  Sender: FDA-Public Use
  Company Number: 2006-BP-01050BP (1)

PATIENT
  Age: 70 Year
  Sex: Female

DRUGS (11)
  1. SPIRIVA [Suspect]
     Indication: CHRONIC OBSTRUCTIVE PULMONARY DISEASE
     Dosage: 18 MCG (18 MCG, 1 IN 1 D), IH
     Route: 055
  2. DIGOXIN [Concomitant]
  3. ENALAPRIL MALEATE [Concomitant]
  4. FUROSEMIDE [Concomitant]
  5. LEVOTHYROXINE SODIUM [Concomitant]
  6. WARFARIN SODIUM [Concomitant]
  7. TAMOXIFEN CITRATE [Concomitant]
  8. SEREVENT [Concomitant]
  9. FLOVENT [Concomitant]
  10. KLOR-CON [Concomitant]
  11. OXYGEN (OXYGEN) [Concomitant]

REACTIONS (1)
  - DYSPNOEA [None]
